FAERS Safety Report 14676679 (Version 1)
Quarter: 2018Q1

REPORT INFORMATION
  Report Type: Report from Study
  Country: CN (occurrence: CN)
  Receive Date: 20180324
  Receipt Date: 20180324
  Transmission Date: 20180509
  Serious: Yes (Other)
  Sender: FDA-Public Use
  Company Number: CN-ROCHE-2042418

PATIENT
  Sex: Male
  Weight: 93 kg

DRUGS (1)
  1. AVASTIN [Suspect]
     Active Substance: BEVACIZUMAB
     Indication: RECTAL CANCER
     Route: 041
     Dates: start: 20170818

REACTIONS (6)
  - Fatigue [Unknown]
  - Haematochezia [Unknown]
  - Labile blood pressure [Unknown]
  - Immunodeficiency [Unknown]
  - Dermatitis allergic [Unknown]
  - Hypertension [Unknown]
